FAERS Safety Report 4514741-9 (Version None)
Quarter: 2004Q4

REPORT INFORMATION
  Report Type: 
  Country: None (occurrence: None)
  Receive Date: 20041201
  Receipt Date: 20041119
  Transmission Date: 20050328
  Serious: Yes (Hospitalization)
  Sender: FDA-Public Use
  Company Number: US-JNJFOC-20041105187

PATIENT
  Sex: Female
  Weight: 53.07 kg

DRUGS (25)
  1. INFLIXIMAB [Suspect]
     Indication: RHEUMATOID ARTHRITIS
     Route: 042
  2. CALCIUM [Suspect]
     Indication: DRUG USE FOR UNKNOWN INDICATION
  3. PREDNISONE [Concomitant]
  4. FOLIC ACID [Concomitant]
  5. TENEX [Concomitant]
  6. POTASSIUM [Concomitant]
  7. OXYBUTYNIN [Concomitant]
  8. FOSAMAX [Concomitant]
  9. ULTRAM [Concomitant]
  10. MULTI-VITAMIN [Concomitant]
  11. MULTI-VITAMIN [Concomitant]
  12. MULTI-VITAMIN [Concomitant]
  13. MULTI-VITAMIN [Concomitant]
  14. MULTI-VITAMIN [Concomitant]
  15. MULTI-VITAMIN [Concomitant]
  16. MULTI-VITAMIN [Concomitant]
  17. MULTI-VITAMIN [Concomitant]
  18. CARDURA [Concomitant]
  19. LANOXIN [Concomitant]
  20. DICLOFENAC [Concomitant]
  21. ALDACTAZIDE [Concomitant]
  22. ALDACTAZIDE [Concomitant]
     Dosage: 25/25 DAILY
  23. METHOTREXATE [Concomitant]
  24. NASACORT [Concomitant]
  25. ALBUTEROL [Concomitant]

REACTIONS (3)
  - DYSARTHRIA [None]
  - GAIT DISTURBANCE [None]
  - HYPERCALCAEMIA [None]
